FAERS Safety Report 13063863 (Version 1)
Quarter: 2016Q4

REPORT INFORMATION
  Report Type: Spontaneous
  Country: US (occurrence: US)
  Receive Date: 20161227
  Receipt Date: 20161227
  Transmission Date: 20170207
  Serious: No
  Sender: FDA-Public Use
  Company Number: US-PFIZER INC-2016589860

PATIENT
  Age: 57 Year
  Sex: Male

DRUGS (2)
  1. DILANTIN [Suspect]
     Active Substance: PHENYTOIN
     Dosage: 30 MG, UNK (20 CAP A DAY)
  2. DILANTIN [Suspect]
     Active Substance: PHENYTOIN
     Dosage: 200 MG, 3X/DAY

REACTIONS (2)
  - Migraine [Unknown]
  - Nausea [Unknown]
